FAERS Safety Report 12781413 (Version 6)
Quarter: 2017Q1

REPORT INFORMATION
  Report Type: Report from Study
  Country: US (occurrence: US)
  Receive Date: 20160926
  Receipt Date: 20170216
  Transmission Date: 20170428
  Serious: Yes (Hospitalization)
  Sender: FDA-Public Use
  Company Number: US-SA-2016SA175347

PATIENT
  Age: 49 Year
  Sex: Female

DRUGS (1)
  1. LEMTRADA [Suspect]
     Active Substance: ALEMTUZUMAB
     Indication: MULTIPLE SCLEROSIS
     Route: 041
     Dates: start: 20160801, end: 20160805

REACTIONS (6)
  - Hospitalisation [Unknown]
  - Mobility decreased [Recovered/Resolved]
  - Nuclear magnetic resonance imaging abnormal [Unknown]
  - Blood cholesterol increased [Recovered/Resolved]
  - Cerebral infarction [Unknown]
  - Seizure [Recovered/Resolved]

NARRATIVE: CASE EVENT DATE: 201609
